FAERS Safety Report 4795672-6 (Version None)
Quarter: 2005Q3

REPORT INFORMATION
  Report Type: 
  Country: None (occurrence: None)
  Receive Date: 20050916
  Receipt Date: 20050621
  Transmission Date: 20060218
  Serious: Yes (Hospitalization)
  Sender: FDA-Public Use
  Company Number: US-JNJFOC-20050606141

PATIENT
  Age: 61 Year
  Sex: Female

DRUGS (2)
  1. TOPAMAX [Suspect]
     Indication: CONVULSION
     Dosage: 100 MG, 2 IN 1 DAY, ORAL;  200 MG, 2 IN 1 DAY, ORAL
     Route: 048
     Dates: start: 20041001, end: 20050201
  2. TOPAMAX [Suspect]
     Indication: CONVULSION
     Dosage: 100 MG, 2 IN 1 DAY, ORAL;  200 MG, 2 IN 1 DAY, ORAL
     Route: 048
     Dates: start: 20050201

REACTIONS (1)
  - CONVULSION [None]
